FAERS Safety Report 13811191 (Version 1)
Quarter: 2017Q3

REPORT INFORMATION
  Report Type: Spontaneous
  Country: US (occurrence: US)
  Receive Date: 20170728
  Receipt Date: 20170728
  Transmission Date: 20171127
  Serious: No
  Sender: FDA-Public Use
  Company Number: US-ROCHE-768208

PATIENT
  Sex: Female

DRUGS (2)
  1. BONIVA [Suspect]
     Active Substance: IBANDRONATE SODIUM
     Indication: PRODUCT USED FOR UNKNOWN INDICATION
     Dosage: ONE INFUSION
     Route: 065
     Dates: start: 201009, end: 201009
  2. BONIVA [Suspect]
     Active Substance: IBANDRONATE SODIUM
     Dosage: SECOND INFUSION.
     Route: 065

REACTIONS (3)
  - Influenza like illness [Recovering/Resolving]
  - Musculoskeletal discomfort [Recovering/Resolving]
  - Groin pain [Recovering/Resolving]

NARRATIVE: CASE EVENT DATE: 201009
